FAERS Safety Report 7502427-8 (Version None)
Quarter: 2011Q2

REPORT INFORMATION
  Report Type: 
  Country: None (occurrence: None)
  Receive Date: 20110525
  Receipt Date: 20110520
  Transmission Date: 20111010
  Serious: Yes (Other)
  Sender: FDA-Public Use
  Company Number: JP-PFIZER INC-2011105070

PATIENT
  Age: 65 Year
  Sex: Male

DRUGS (1)
  1. ALPRAZOLAM [Suspect]
     Dosage: 0.4 MG, 1X/DAY
     Route: 048

REACTIONS (1)
  - PHOTOSENSITIVITY REACTION [None]
